FAERS Safety Report 8495344-0 (Version None)
Quarter: 2012Q3

REPORT INFORMATION
  Report Type: 
  Country: None (occurrence: None)
  Receive Date: 20120709
  Receipt Date: 20120702
  Transmission Date: 20120928
  Serious: No
  Sender: FDA-Public Use
  Company Number: US-BAYER-2012-066890

PATIENT
  Age: 83 Year
  Sex: Female
  Weight: 46.259 kg

DRUGS (3)
  1. TOPROL-XL [Concomitant]
  2. ALEVE (CAPLET) [Suspect]
     Dosage: 1 DF, PRN
     Route: 048
     Dates: start: 20120702
  3. ASPIRIN [Concomitant]
     Indication: ISCHAEMIC HEART DISEASE PROPHYLAXIS
     Dosage: 1 DF, QD
     Route: 048

REACTIONS (1)
  - NO ADVERSE EVENT [None]
